FAERS Safety Report 11499404 (Version 1)
Quarter: 2015Q3

REPORT INFORMATION
  Report Type: Spontaneous
  Country: US (occurrence: US)
  Receive Date: 20150914
  Receipt Date: 20150914
  Transmission Date: 20151125
  Serious: No
  Sender: FDA-Public Use
  Company Number: US-ASTRAZENECA-2015SE84613

PATIENT
  Sex: Male

DRUGS (5)
  1. BYDUREON [Suspect]
     Active Substance: EXENATIDE
     Indication: TYPE 2 DIABETES MELLITUS
     Route: 058
     Dates: start: 20150706
  2. MULTIPLE MEDICATION [Concomitant]
     Indication: BACK PAIN
  3. ANTI INFLAMMMATORY MEDICATION [Concomitant]
  4. ASPIRIN. [Concomitant]
     Active Substance: ASPIRIN
  5. BLOOD THINNER MEDICATION [Concomitant]
     Indication: BLOOD DISORDER

REACTIONS (9)
  - Gastrooesophageal reflux disease [Unknown]
  - Pyrexia [Unknown]
  - Nausea [Unknown]
  - Constipation [Unknown]
  - Dysgeusia [Unknown]
  - Hypophagia [Unknown]
  - Weight decreased [Not Recovered/Not Resolved]
  - Eructation [Recovered/Resolved]
  - Vomiting [Unknown]
